FAERS Safety Report 11151729 (Version 1)
Quarter: 2015Q2

REPORT INFORMATION
  Report Type: Spontaneous
  Country: US (occurrence: None)
  Receive Date: 20150529
  Receipt Date: 20150529
  Transmission Date: 20150821
  Serious: Yes (Other)
  Sender: FDA-Public Use
  Company Number: None

PATIENT
  Age: 44 Year
  Sex: Female
  Weight: 80.74 kg

DRUGS (4)
  1. ATORVASTATIN CALCIUM. [Concomitant]
     Active Substance: ATORVASTATIN CALCIUM
  2. CLARITIN [Concomitant]
     Active Substance: LORATADINE
  3. XARELTO [Suspect]
     Active Substance: RIVAROXABAN
     Indication: THROMBOSIS PROPHYLAXIS
     Dosage: FROM 2 PER DAY TO 1 PER DAY
     Route: 048
     Dates: start: 20150313
  4. BAUER 81MG [Concomitant]

REACTIONS (1)
  - Anxiety [None]

NARRATIVE: CASE EVENT DATE: 20150528
